FAERS Safety Report 6273978-1 (Version None)
Quarter: 2009Q3

REPORT INFORMATION
  Report Type: 
  Country: None (occurrence: None)
  Receive Date: 20090720
  Receipt Date: 20050924
  Transmission Date: 20100115
  Serious: Yes (Death, Hospitalization)
  Sender: FDA-Public Use
  Company Number: US-ROCHE-638289

PATIENT
  Sex: Male

DRUGS (7)
  1. ENFUVIRTIDE [Suspect]
     Route: 065
     Dates: start: 20040207, end: 20060101
  2. VIREAD [Concomitant]
     Dates: start: 20020927, end: 20050924
  3. KALETRA [Concomitant]
     Route: 048
     Dates: start: 20020101, end: 20040610
  4. NORVIR [Concomitant]
     Dates: start: 20020101, end: 20060101
  5. LEXIVA [Concomitant]
     Dates: start: 20040610, end: 20060101
  6. LEVAQUIN [Concomitant]
     Dates: start: 20040110, end: 20040620
  7. LEVAQUIN [Concomitant]
     Dates: start: 20050913, end: 20050920

REACTIONS (3)
  - ANAEMIA [None]
  - ESCHERICHIA INFECTION [None]
  - RENAL FAILURE ACUTE [None]
